FAERS Safety Report 5333387-6 (Version None)
Quarter: 2007Q2

REPORT INFORMATION
  Report Type: 
  Country: None (occurrence: None)
  Receive Date: 20070521
  Receipt Date: 20070508
  Transmission Date: 20071010
  Serious: Yes (Other)
  Sender: FDA-Public Use
  Company Number: PAR_01551_2007

PATIENT
  Age: 66 Year
  Sex: Female
  Weight: 68.0396 kg

DRUGS (3)
  1. MEGESTROL ACETATE [Suspect]
     Indication: ENDOMETRIAL CANCER METASTATIC
     Dosage: 80 MG BID ORAL
     Route: 048
     Dates: start: 20070116
  2. NORVASC [Concomitant]
  3. TOPROL-XL [Concomitant]

REACTIONS (8)
  - HOT FLUSH [None]
  - INSOMNIA [None]
  - OEDEMA PERIPHERAL [None]
  - POLLAKIURIA [None]
  - THIRST [None]
  - TREMOR [None]
  - VISUAL DISTURBANCE [None]
  - WEIGHT INCREASED [None]
